FAERS Safety Report 12646217 (Version 1)
Quarter: 2016Q3

REPORT INFORMATION
  Report Type: Spontaneous
  Country: US (occurrence: US)
  Receive Date: 20160811
  Receipt Date: 20160811
  Transmission Date: 20161109
  Serious: No
  Sender: FDA-Public Use
  Company Number: US-ASTRAZENECA-2016SE74381

PATIENT
  Sex: Male

DRUGS (1)
  1. NEXIUM [Suspect]
     Active Substance: ESOMEPRAZOLE MAGNESIUM
     Indication: GASTROOESOPHAGEAL REFLUX DISEASE
     Route: 048
     Dates: start: 20160425, end: 20160509

REACTIONS (8)
  - Crying [Unknown]
  - Discomfort [Unknown]
  - Vomiting [Unknown]
  - Restlessness [Unknown]
  - Malaise [Unknown]
  - Muscle spasms [Unknown]
  - Limb discomfort [Unknown]
  - Screaming [Unknown]
